FAERS Safety Report 18054953 (Version 1)
Quarter: 2020Q3

REPORT INFORMATION
  Report Type: Spontaneous
  Country: GB (occurrence: GB)
  Receive Date: 20200722
  Receipt Date: 20200722
  Transmission Date: 20201103
  Serious: Yes (Other)
  Sender: FDA-Public Use
  Company Number: NVSC2020GB126848

PATIENT
  Age: 12 Year
  Sex: Female

DRUGS (2)
  1. FOLIC ACID. [Concomitant]
     Active Substance: FOLIC ACID
     Indication: PRODUCT USED FOR UNKNOWN INDICATION
     Dosage: 5 MG, QW 1 DAY AFTER THE METHOTREXATE DOSE
     Route: 048
  2. METHOTREXATE. [Suspect]
     Active Substance: METHOTREXATE
     Indication: CROHN^S DISEASE
     Dosage: UNK, QW WEEKLY
     Route: 065

REACTIONS (2)
  - Product use in unapproved indication [Unknown]
  - Alanine aminotransferase increased [Recovered/Resolved]
